FAERS Safety Report 13301950 (Version 7)
Quarter: 2018Q3

REPORT INFORMATION
  Report Type: Spontaneous
  Country: NO (occurrence: NO)
  Receive Date: 20170307
  Receipt Date: 20180803
  Transmission Date: 20181010
  Serious: Yes (Death, Other)
  Sender: FDA-Public Use
  Company Number: NO-PFIZER INC-2017091341

PATIENT
  Age: 25 Year
  Sex: Female

DRUGS (6)
  1. CYTARABINE. [Suspect]
     Active Substance: CYTARABINE
     Indication: ACUTE LYMPHOCYTIC LEUKAEMIA
     Dosage: GIVEN ACCORDING TO NOPHO PROTOCOL, INITIALLY TWO TIMES PER WEEK
     Route: 037
     Dates: start: 20160628, end: 201609
  2. PREDNISOLON [Suspect]
     Active Substance: PREDNISOLONE
     Indication: ACUTE LYMPHOCYTIC LEUKAEMIA
     Dosage: UNK UNK, 2X/WEEK (GIVEN ACCORDING TO NOPHO PROTOCOL, INITIALLY TWO TIMES PER WEEK)
     Route: 037
     Dates: start: 20160628, end: 201609
  3. PREDNISOLON [Suspect]
     Active Substance: PREDNISOLONE
     Indication: LEUKOCYTOSIS
     Dosage: GIVEN ACCORDING TO NOPHO PROTOCOL, ONE TIME WEEKLY
     Route: 037
     Dates: start: 20160919, end: 20161115
  4. METEX (METHOTREXATE SODIUM) [Suspect]
     Active Substance: METHOTREXATE SODIUM
     Indication: LEUKOCYTOSIS
     Dosage: GIVEN ACCORDING TO NOPHO PROTOCOL, ONE TIME WEEKLY
     Route: 037
     Dates: start: 20160919, end: 20161115
  5. CYTARABINE. [Suspect]
     Active Substance: CYTARABINE
     Indication: LEUKOCYTOSIS
     Dosage: GIVEN ACCORDING TO NOPHO PROTOCOL, ONE TIME WEEKLY
     Route: 037
     Dates: start: 20160919, end: 20161115
  6. METEX (METHOTREXATE SODIUM) [Suspect]
     Active Substance: METHOTREXATE SODIUM
     Indication: ACUTE LYMPHOCYTIC LEUKAEMIA
     Dosage: GIVEN ACCORDING TO NOPHO PROTOCOL, INITIALLY TWO TIMES PER WEEK
     Route: 037
     Dates: start: 20160628, end: 20160918

REACTIONS (12)
  - Myelomalacia [Not Recovered/Not Resolved]
  - Acute lymphocytic leukaemia recurrent [None]
  - Neurogenic bladder [Not Recovered/Not Resolved]
  - Toxicity to various agents [Not Recovered/Not Resolved]
  - Leukoencephalopathy [Fatal]
  - Paraplegia [Not Recovered/Not Resolved]
  - Grip strength decreased [Not Recovered/Not Resolved]
  - Motor dysfunction [Not Recovered/Not Resolved]
  - Neoplasm recurrence [Fatal]
  - Anal sphincter atony [Not Recovered/Not Resolved]
  - Spinal cord disorder [Unknown]
  - Myelopathy [Fatal]

NARRATIVE: CASE EVENT DATE: 201608
